FAERS Safety Report 8980610 (Version 3)
Quarter: 2013Q1

REPORT INFORMATION
  Report Type: Report from Study
  Country: US (occurrence: US)
  Receive Date: 20121221
  Receipt Date: 20130118
  Transmission Date: 20140127
  Serious: Yes (Hospitalization)
  Sender: FDA-Public Use
  Company Number: US-JNJFOC-20121209413

PATIENT
  Sex: Female
  Weight: 46.4 kg

DRUGS (2)
  1. REMICADE [Suspect]
     Indication: INFLAMMATORY BOWEL DISEASE
     Route: 042
     Dates: start: 20101215
  2. 6-MERCAPTOPURINE [Concomitant]

REACTIONS (1)
  - Ileal stenosis [Recovered/Resolved]
